FAERS Safety Report 15941841 (Version 2)
Quarter: 2019Q1

REPORT INFORMATION
  Report Type: Spontaneous
  Country: US (occurrence: US)
  Receive Date: 20190209
  Receipt Date: 20190330
  Transmission Date: 20190417
  Serious: Yes (Other)
  Sender: FDA-Public Use
  Company Number: US-PRINSTON PHARMACEUTICAL INC.-2019PRN00075

PATIENT
  Age: 61 Year
  Sex: Female
  Weight: 51.25 kg

DRUGS (8)
  1. PTU [Concomitant]
     Active Substance: PROPYLTHIOURACIL
  2. XANAX [Concomitant]
     Active Substance: ALPRAZOLAM
  3. ZOCOR [Concomitant]
     Active Substance: SIMVASTATIN
  4. ALDACTONE [Concomitant]
     Active Substance: SPIRONOLACTONE
  5. LOSARTAN POTASSIUM. [Suspect]
     Active Substance: LOSARTAN POTASSIUM
     Dosage: 50 MG, 1X/DAY
     Route: 048
  6. ATENOLOL. [Concomitant]
     Active Substance: ATENOLOL
  7. VITAMIN D [Concomitant]
     Active Substance: CHOLECALCIFEROL
  8. DIAZEPAM. [Concomitant]
     Active Substance: DIAZEPAM

REACTIONS (16)
  - Fluid intake reduced [Recovering/Resolving]
  - Bone pain [Not Recovered/Not Resolved]
  - Headache [Not Recovered/Not Resolved]
  - Blood potassium increased [Not Recovered/Not Resolved]
  - Protein total increased [Not Recovered/Not Resolved]
  - Hypergammaglobulinaemia [Unknown]
  - Irritable bowel syndrome [Not Recovered/Not Resolved]
  - Hypophagia [Recovering/Resolving]
  - Nausea [Not Recovered/Not Resolved]
  - Memory impairment [Not Recovered/Not Resolved]
  - Blood test abnormal [Not Recovered/Not Resolved]
  - Weight decreased [Not Recovered/Not Resolved]
  - Blood calcium abnormal [Not Recovered/Not Resolved]
  - Thrombocytosis [Unknown]
  - Plasma cell myeloma [Not Recovered/Not Resolved]
  - Vomiting [Not Recovered/Not Resolved]

NARRATIVE: CASE EVENT DATE: 2018
